FAERS Safety Report 14166961 (Version 1)
Quarter: 2017Q4

REPORT INFORMATION
  Report Type: Spontaneous
  Country: CA (occurrence: CA)
  Receive Date: 20171107
  Receipt Date: 20171107
  Transmission Date: 20180321
  Serious: Yes (Other)
  Sender: FDA-Public Use
  Company Number: CA-SA-2017SA217153

PATIENT
  Sex: Female

DRUGS (3)
  1. PRALUENT [Suspect]
     Active Substance: ALIROCUMAB
     Indication: BLOOD CHOLESTEROL
     Route: 058
     Dates: start: 20170320, end: 20170515
  2. RISPERIDONE. [Concomitant]
     Active Substance: RISPERIDONE
  3. ALIROCUMAB PREFILLED PEN [Suspect]
     Active Substance: ALIROCUMAB
     Indication: BLOOD CHOLESTEROL
     Dates: start: 20170320, end: 20170515

REACTIONS (5)
  - Crying [Unknown]
  - Confusional state [Unknown]
  - Delirium [Unknown]
  - Dementia [Unknown]
  - Amnesia [Unknown]

NARRATIVE: CASE EVENT DATE: 201704
